FAERS Safety Report 5888774-4 (Version None)
Quarter: 2008Q3

REPORT INFORMATION
  Report Type: 
  Country: None (occurrence: None)
  Receive Date: 20080917
  Receipt Date: 20080917
  Transmission Date: 20090109
  Serious: Yes (Other)
  Sender: FDA-Public Use
  Company Number: None

PATIENT
  Age: 52 Year
  Sex: Female
  Weight: 77.1115 kg

DRUGS (1)
  1. PERMETHRIN [Suspect]
     Indication: ACARODERMATITIS
     Dosage: LAYER OF CREAM ONCE OR TWICE ON BODY
     Dates: start: 20080829

REACTIONS (9)
  - BURNING SENSATION [None]
  - DIARRHOEA [None]
  - EYE PAIN [None]
  - HYPOAESTHESIA ORAL [None]
  - LIP SWELLING [None]
  - NAUSEA [None]
  - PARAESTHESIA [None]
  - PYREXIA [None]
  - SOMNOLENCE [None]
